FAERS Safety Report 23717744 (Version 1)
Quarter: 2024Q2

REPORT INFORMATION
  Report Type: Spontaneous
  Country: NL (occurrence: NL)
  Receive Date: 20240408
  Receipt Date: 20240408
  Transmission Date: 20240716
  Serious: Yes (Hospitalization, Other)
  Sender: FDA-Public Use
  Company Number: None

PATIENT
  Age: 12 Year
  Sex: Male

DRUGS (10)
  1. MYCOPHENOLATE MOFETIL [Suspect]
     Active Substance: MYCOPHENOLATE MOFETIL
     Indication: Hashimoto^s encephalopathy
     Dosage: 1 GRAM, QD
     Route: 065
  2. PREDNISONE [Suspect]
     Active Substance: PREDNISONE
     Indication: Hashimoto^s encephalopathy
     Dosage: 1 MILLIGRAM/KILOGRAM, QD
     Route: 048
  3. PREDNISONE [Suspect]
     Active Substance: PREDNISONE
     Dosage: 5 MILLIGRAM/KILOGRAM, Q2D
     Route: 048
  4. PREDNISONE [Suspect]
     Active Substance: PREDNISONE
     Dosage: 7.5 MILLIGRAM, QD
     Route: 048
  5. PREDNISONE [Suspect]
     Active Substance: PREDNISONE
     Dosage: 20 MILLIGRAM, QD
     Route: 048
  6. METHYLPREDNISOLONE [Suspect]
     Active Substance: METHYLPREDNISOLONE
     Indication: Hashimoto^s encephalopathy
     Dosage: 15 MILLIGRAM/KILOGRAM, QD (PULSE THERAPY)
     Route: 065
  7. METHYLPREDNISOLONE [Suspect]
     Active Substance: METHYLPREDNISOLONE
     Dosage: 15 MILLIGRAM/KILOGRAM, QD (FOR THREE CONSECUTIVE DAYS)
     Route: 065
  8. RITUXIMAB [Suspect]
     Active Substance: RITUXIMAB
     Indication: Hashimoto^s encephalopathy
     Dosage: 375 MG/ M2 WEEKLY FOR FOUR WEEKS
     Route: 042
  9. LEVOTHYROXINE [Concomitant]
     Active Substance: LEVOTHYROXINE\LEVOTHYROXINE SODIUM
     Indication: Hashimoto^s encephalopathy
     Dosage: 0.5 MILLIGRAM, Q2D
     Route: 065
  10. LEVOTHYROXINE [Concomitant]
     Active Substance: LEVOTHYROXINE\LEVOTHYROXINE SODIUM
     Indication: Hypothyroidism
     Dosage: UNK
     Route: 065

REACTIONS (15)
  - Hashimoto^s encephalopathy [Recovering/Resolving]
  - Disease recurrence [Unknown]
  - Condition aggravated [Unknown]
  - Disturbance in attention [Recovering/Resolving]
  - Hypogammaglobulinaemia [Unknown]
  - Abdominal abscess [Unknown]
  - Orchitis [Unknown]
  - Confusional state [Recovering/Resolving]
  - Ureaplasma infection [Unknown]
  - Cushing^s syndrome [Unknown]
  - Hypertension [Unknown]
  - Headache [Recovering/Resolving]
  - Drug ineffective [Recovering/Resolving]
  - Off label use [Unknown]
  - Intentional product misuse [Unknown]
